FAERS Safety Report 14994199 (Version 4)
Quarter: 2020Q3

REPORT INFORMATION
  Report Type: Report from Study
  Country: US (occurrence: US)
  Receive Date: 20180611
  Receipt Date: 20181005
  Transmission Date: 20201105
  Serious: Yes (Hospitalization)
  Sender: FDA-Public Use
  Company Number: US-ASTRAZENECA-2018SE75533

PATIENT
  Age: 71 Year
  Sex: Male
  Weight: 89.4 kg

DRUGS (16)
  1. ADAVOSERTIB. [Suspect]
     Active Substance: ADAVOSERTIB
     Indication: NEUROENDOCRINE CARCINOMA
     Route: 048
     Dates: start: 20180325, end: 20180531
  2. DEXTROMETHORPHAN [Suspect]
     Active Substance: DEXTROMETHORPHAN
     Indication: COUGH
     Dosage: 5.0ML AS REQUIRED
     Route: 048
     Dates: start: 20180514
  3. ADAVOSERTIB. [Suspect]
     Active Substance: ADAVOSERTIB
     Indication: NEUROENDOCRINE CARCINOMA
     Route: 048
     Dates: start: 20180404, end: 20180525
  4. ALLOPURINOL. [Concomitant]
     Active Substance: ALLOPURINOL
     Indication: ARTHRITIS
     Route: 048
     Dates: start: 20000307
  5. GLIPIZIDE. [Concomitant]
     Active Substance: GLIPIZIDE
     Indication: DIABETES MELLITUS
     Route: 048
     Dates: start: 20100307
  6. IMODIUM [Concomitant]
     Active Substance: LOPERAMIDE HYDROCHLORIDE
     Indication: DIARRHOEA
     Dosage: 2.0MG UNKNOWN
     Dates: start: 20180405
  7. NAPROXEN. [Concomitant]
     Active Substance: NAPROXEN
     Indication: PAIN
     Dosage: 500.0MG AS REQUIRED
     Route: 048
     Dates: start: 20100307
  8. VALSARTAN. [Suspect]
     Active Substance: VALSARTAN
     Indication: HYPERTENSION
     Route: 048
     Dates: start: 20100307
  9. METFORMIN [Concomitant]
     Active Substance: METFORMIN HYDROCHLORIDE
     Indication: DIABETES MELLITUS
     Route: 048
     Dates: start: 20140307
  10. SALONPAS PAIN RELIEF [Concomitant]
     Active Substance: MENTHOL\METHYL SALICYLATE
     Indication: PAIN
     Dosage: 10.0% AS REQUIRED
     Dates: start: 20180307
  11. OLAPARIB. [Suspect]
     Active Substance: OLAPARIB
     Indication: NEUROENDOCRINE CARCINOMA
     Route: 048
     Dates: start: 20180325, end: 20180531
  12. MULTIVITAMIN AND MINERAL [Concomitant]
     Indication: SUPPLEMENTATION THERAPY
     Dosage: 1 UNK, PRN
     Route: 048
     Dates: start: 19990307
  13. ZOFRAN [Concomitant]
     Active Substance: ONDANSETRON HYDROCHLORIDE
     Indication: NAUSEA
     Dosage: 8 MG, UNK
     Dates: start: 20180323
  14. DEXAMETHASONE. [Concomitant]
     Active Substance: DEXAMETHASONE
     Dosage: 4.0MG UNKNOWN
     Route: 048
     Dates: start: 20180323
  15. DEXLANSOPRAZOLE [Concomitant]
     Active Substance: DEXLANSOPRAZOLE
     Indication: GASTROOESOPHAGEAL REFLUX DISEASE
     Route: 048
     Dates: start: 20180307
  16. TUMS [Concomitant]
     Active Substance: CALCIUM CARBONATE
     Indication: GASTROOESOPHAGEAL REFLUX DISEASE
     Dosage: 500.0MG AS REQUIRED
     Route: 048
     Dates: start: 20180306

REACTIONS (2)
  - Pneumonia [Recovered/Resolved]
  - Hypotension [Recovered/Resolved]

NARRATIVE: CASE EVENT DATE: 20180531
